FAERS Safety Report 10164546 (Version 1)
Quarter: 2014Q2

REPORT INFORMATION
  Report Type: Spontaneous
  Country: US (occurrence: US)
  Receive Date: 20140510
  Receipt Date: 20140510
  Transmission Date: 20141212
  Serious: No
  Sender: FDA-Public Use
  Company Number: US-BRISTOL-MYERS SQUIBB COMPANY-20107447

PATIENT
  Age: 56 Year
  Sex: Female
  Weight: 90.7 kg

DRUGS (2)
  1. BYDUREON [Suspect]
     Route: 058
  2. NOVOLOG [Concomitant]
     Dosage: NOVOLOG 70/30

REACTIONS (1)
  - Injection site pain [Not Recovered/Not Resolved]
